FAERS Safety Report 8206003-3 (Version None)
Quarter: 2012Q1

REPORT INFORMATION
  Report Type: 
  Country: None (occurrence: None)
  Receive Date: 20120313
  Receipt Date: 20120229
  Transmission Date: 20120608
  Serious: Yes (Other)
  Sender: FDA-Public Use
  Company Number: DE-FRI-1000027439

PATIENT
  Age: 56 Year
  Sex: Male
  Weight: 95 kg

DRUGS (12)
  1. ROFLUMILAST [Suspect]
     Route: 048
     Dates: start: 20110101, end: 20110415
  2. ALBUTEROL [Concomitant]
     Indication: CHRONIC OBSTRUCTIVE PULMONARY DISEASE
     Dates: start: 20100101
  3. SIMVASTATIN [Concomitant]
     Indication: CORONARY ARTERY DISEASE
     Dates: start: 20080101
  4. BUPRENORPHINE [Concomitant]
     Indication: PAIN
     Dates: start: 20101001
  5. PREDNISOLONE [Concomitant]
     Indication: CHRONIC OBSTRUCTIVE PULMONARY DISEASE
     Dates: start: 20100101
  6. ONBREZ [Concomitant]
     Indication: CHRONIC OBSTRUCTIVE PULMONARY DISEASE
     Dates: start: 20101101
  7. ACC LONG [Concomitant]
     Indication: CHRONIC OBSTRUCTIVE PULMONARY DISEASE
     Dates: start: 20101001
  8. ROFLUMILAST [Suspect]
     Indication: CHRONIC OBSTRUCTIVE PULMONARY DISEASE
     Route: 048
     Dates: start: 20110404, end: 20110101
  9. ASPIRIN [Concomitant]
     Indication: CORONARY ARTERY DISEASE
  10. RAMIPRIL [Concomitant]
     Indication: HYPERTENSION
     Dates: start: 20080801
  11. AMITRIPTYLINE HCL [Concomitant]
     Indication: PAIN
     Dates: start: 20101001
  12. ASPIRIN [Concomitant]
     Indication: CEREBROVASCULAR DISORDER
     Dates: start: 20070701

REACTIONS (2)
  - BREAST SWELLING [None]
  - BREAST PAIN [None]
